FAERS Safety Report 9454331 (Version 1)
Quarter: 2013Q3

REPORT INFORMATION
  Report Type: Spontaneous
  Country: JP (occurrence: JP)
  Receive Date: 20130812
  Receipt Date: 20130812
  Transmission Date: 20140515
  Serious: Yes (Hospitalization)
  Sender: FDA-Public Use
  Company Number: PHHY2013JP073144

PATIENT
  Age: 93 Year
  Sex: Male

DRUGS (1)
  1. HYDERGINE [Suspect]
     Indication: HYPERTENSION
     Dosage: 2 MG, DAILY
     Route: 048
     Dates: end: 20130709

REACTIONS (2)
  - Pneumonia [Unknown]
  - Dysphagia [Unknown]
